FAERS Safety Report 25245317 (Version 1)
Quarter: 2025Q2

REPORT INFORMATION
  Report Type: Spontaneous
  Country: US (occurrence: US)
  Receive Date: 20250428
  Receipt Date: 20250428
  Transmission Date: 20250716
  Serious: Yes (Other)
  Sender: ASTELLAS
  Company Number: US-ASTELLAS-2025-AER-021699

PATIENT
  Age: 58 Year
  Sex: Female

DRUGS (1)
  1. VEOZAH [Suspect]
     Active Substance: FEZOLINETANT
     Indication: Product used for unknown indication
     Route: 065
     Dates: start: 202502, end: 2025

REACTIONS (4)
  - Alanine aminotransferase increased [Unknown]
  - Hypertension [Unknown]
  - Hyperlipidaemia [Unknown]
  - Aspartate aminotransferase increased [Unknown]
